FAERS Safety Report 8388371-5 (Version None)
Quarter: 2012Q2

REPORT INFORMATION
  Report Type: 
  Country: None (occurrence: None)
  Receive Date: 20120525
  Receipt Date: 20120523
  Transmission Date: 20120825
  Serious: No
  Sender: FDA-Public Use
  Company Number: US-TEVA-339718USA

PATIENT
  Sex: Female
  Weight: 90.8 kg

DRUGS (3)
  1. ORTHO TRI-CYCLEN LO [Concomitant]
     Indication: CONTRACEPTION
  2. DOXYCYCLINE [Concomitant]
     Indication: ACNE
  3. PLAN B ONE-STEP [Suspect]
     Indication: POST COITAL CONTRACEPTION
     Dosage: 1.5 MILLIGRAM;
     Route: 048
     Dates: start: 20120522, end: 20120522

REACTIONS (1)
  - MENSTRUATION IRREGULAR [None]
